FAERS Safety Report 16030291 (Version 1)
Quarter: 2019Q1

REPORT INFORMATION
  Report Type: Spontaneous
  Country: FR (occurrence: FR)
  Receive Date: 20190304
  Receipt Date: 20190304
  Transmission Date: 20190418
  Serious: Yes (Hospitalization)
  Sender: FDA-Public Use
  Company Number: FR-PFIZER INC-2019091087

PATIENT
  Age: 48 Year
  Sex: Male
  Weight: 110 kg

DRUGS (6)
  1. UROMITEXAN [Concomitant]
     Active Substance: MESNA
     Dosage: UNK
  2. ENDOXAN [CYCLOPHOSPHAMIDE MONOHYDRATE] [Concomitant]
     Active Substance: CYCLOPHOSPHAMIDE
     Dosage: UNK
  3. ARACYTINE [Concomitant]
     Active Substance: CYTARABINE
     Dosage: UNK
  4. VINCRISTINE SULFATE. [Suspect]
     Active Substance: VINCRISTINE SULFATE
     Dosage: UNK
     Route: 042
     Dates: start: 20140723
  5. HYDROCORTANCYL [PREDNISOLONE ACETATE] [Concomitant]
     Dosage: UNK
  6. KIDROLASE [Concomitant]
     Active Substance: ASPARAGINASE
     Dosage: UNK

REACTIONS (1)
  - Subileus [Unknown]

NARRATIVE: CASE EVENT DATE: 20140815
